FAERS Safety Report 7001775-8 (Version None)
Quarter: 2010Q3

REPORT INFORMATION
  Report Type: 
  Country: None (occurrence: None)
  Receive Date: 20100920
  Receipt Date: 20070515
  Transmission Date: 20110219
  Serious: Yes (Other)
  Sender: FDA-Public Use
  Company Number: US-ASTRAZENECA-2006UW11621

PATIENT
  Age: 745 Month
  Sex: Female
  Weight: 87.1 kg

DRUGS (15)
  1. SEROQUEL [Suspect]
     Indication: DEPRESSION
     Route: 048
     Dates: start: 20000310, end: 20010622
  2. SEROQUEL [Suspect]
     Route: 048
     Dates: start: 20041027
  3. ABILIFY [Concomitant]
     Dates: start: 20060101
  4. GEODON [Concomitant]
     Dosage: 80MG
     Route: 048
     Dates: start: 20010709
  5. ANTIPSYCOTIC [Concomitant]
  6. ZYPREXA [Concomitant]
  7. EFFEXOR [Concomitant]
     Dosage: 150-225 MG
     Route: 048
     Dates: start: 20010212
  8. REMERON [Concomitant]
     Route: 048
     Dates: start: 20000530
  9. LORAZEPAM [Concomitant]
     Dosage: 1-2 MG PRN
     Dates: start: 20000403
  10. PREMARIN [Concomitant]
     Route: 048
     Dates: start: 20000411
  11. LASIX [Concomitant]
     Dosage: 20-40 MG
     Route: 048
     Dates: start: 20010606
  12. LISINOPRIL [Concomitant]
     Route: 048
     Dates: start: 20010706
  13. MIRAPEX [Concomitant]
     Dosage: 1-4.5 MG
     Route: 048
     Dates: start: 20000110
  14. SYNTHROID [Concomitant]
     Route: 048
     Dates: start: 20030320
  15. KLONOPIN [Concomitant]
     Dosage: 1-2 MG
     Route: 048
     Dates: start: 20000203

REACTIONS (3)
  - DIABETES MELLITUS [None]
  - PANCREATITIS [None]
  - TYPE 2 DIABETES MELLITUS [None]
